FAERS Safety Report 16536068 (Version 2)
Quarter: 2019Q3

REPORT INFORMATION
  Report Type: Spontaneous
  Country: US (occurrence: US)
  Receive Date: 20190705
  Receipt Date: 20190731
  Transmission Date: 20191004
  Serious: Yes (Other)
  Sender: FDA-Public Use
  Company Number: US-PFIZER INC-2019284988

PATIENT
  Age: 50 Year
  Sex: Female

DRUGS (3)
  1. TERBINAFINE. [Suspect]
     Active Substance: TERBINAFINE
     Dosage: UNK
  2. XELJANZ XR [Suspect]
     Active Substance: TOFACITINIB CITRATE
     Dosage: 11 MG, UNK
     Dates: start: 20190626
  3. XELJANZ XR [Suspect]
     Active Substance: TOFACITINIB CITRATE
     Dosage: 11 MG, UNK
     Dates: start: 20190424

REACTIONS (5)
  - Rash [Unknown]
  - Tongue ulceration [Unknown]
  - Fungal infection [Unknown]
  - Pustular psoriasis [Unknown]
  - Acute generalised exanthematous pustulosis [Unknown]
